FAERS Safety Report 23854094 (Version 2)
Quarter: 2024Q2

REPORT INFORMATION
  Report Type: Report from Study
  Country: MX (occurrence: MX)
  Receive Date: 20240514
  Receipt Date: 20240527
  Transmission Date: 20240716
  Serious: Yes (Other)
  Sender: FDA-Public Use
  Company Number: MX-002147023-NVSC2023MX244564

PATIENT
  Age: 43 Year
  Sex: Female
  Weight: 62 kg

DRUGS (17)
  1. OFATUMUMAB [Suspect]
     Active Substance: OFATUMUMAB
     Indication: Multiple sclerosis
     Dosage: 20 MG, QMO
     Route: 058
     Dates: start: 20231104
  2. OFATUMUMAB [Suspect]
     Active Substance: OFATUMUMAB
     Dosage: 20 MG
     Route: 065
     Dates: start: 20231111
  3. OFATUMUMAB [Suspect]
     Active Substance: OFATUMUMAB
     Dosage: 20 MG
     Route: 065
     Dates: start: 20231118
  4. GABAPENTIN [Concomitant]
     Active Substance: GABAPENTIN
     Indication: Pain
     Dosage: 1 DOSAGE FORM, TID
     Route: 048
     Dates: start: 201501
  5. FLUOXETINE [Concomitant]
     Active Substance: FLUOXETINE HYDROCHLORIDE
     Indication: Anger
     Dosage: 1 DOSAGE FORM, QD
     Route: 048
     Dates: start: 202309
  6. MELATONIN [Concomitant]
     Active Substance: MELATONIN
     Indication: Sleep disorder
     Dosage: 1 DOSAGE FORM, QD (AT NIGHT)
     Route: 048
     Dates: start: 202309
  7. OMEGA 3 [Concomitant]
     Active Substance: CAPSAICIN
     Indication: Hypovitaminosis
     Dosage: UNK UNK, QD (A DAY)
     Route: 048
     Dates: start: 201501
  8. HYDROXYZINE [Concomitant]
     Active Substance: HYDROXYZINE HYDROCHLORIDE
     Indication: Acne
     Dosage: 1 DOSAGE FORM, QD (A DAY)
     Route: 048
     Dates: start: 202304
  9. DROSPIRENONE [Concomitant]
     Active Substance: DROSPIRENONE
     Indication: Menstruation irregular
     Dosage: 1 DOSAGE FORM, QD (A DAY)
     Route: 048
     Dates: start: 202308
  10. VITA D [Concomitant]
     Indication: Hypovitaminosis
     Dosage: 1 DOSAGE FORM, QD (10 MILUI, A DAY)
     Route: 048
     Dates: start: 201501
  11. SELENIUM [Concomitant]
     Active Substance: SELENIUM
     Indication: Hypovitaminosis
     Dosage: 1 DOSAGE FORM, QD
     Route: 048
     Dates: start: 201501
  12. MAGNESIUM CITRATE [Concomitant]
     Active Substance: MAGNESIUM CITRATE
     Indication: Hypovitaminosis
     Dosage: 1 DOSAGE FORM, QD (A DAY)
     Route: 048
     Dates: start: 201501
  13. HERBALS\TURMERIC [Concomitant]
     Active Substance: HERBALS\TURMERIC
     Indication: Product used for unknown indication
     Dosage: 1 DOSAGE FORM, QD (A DAY)
     Route: 048
     Dates: start: 201501
  14. GINGER [Concomitant]
     Active Substance: GINGER
     Indication: Product used for unknown indication
     Dosage: 1 DOSAGE FORM, QD (A DAY)
     Route: 048
     Dates: start: 201501
  15. GARLIC [Concomitant]
     Active Substance: GARLIC
     Indication: Product used for unknown indication
     Dosage: 1 DOSAGE FORM, QD (A DAY)
     Route: 048
     Dates: start: 201501
  16. ALPHA LIPOIC ACID [Concomitant]
     Active Substance: .ALPHA.-LIPOIC ACID
     Indication: Product used for unknown indication
     Dosage: 1 DOSAGE FORM, QD (A DAY)
     Route: 048
     Dates: start: 201501
  17. LEVOTHYROXINE SODIUM [Concomitant]
     Active Substance: LEVOTHYROXINE SODIUM
     Indication: Hypothyroidism
     Dosage: 100 UG, QD (START DATE: MORE THAN 2 YEARS AGO)
     Route: 048

REACTIONS (13)
  - Colitis [Not Recovered/Not Resolved]
  - Dizziness [Recovered/Resolved]
  - Fatigue [Recovered/Resolved]
  - Liver disorder [Recovered/Resolved]
  - Hiatus hernia [Not Recovered/Not Resolved]
  - Oesophagitis [Not Recovered/Not Resolved]
  - Proctitis [Not Recovered/Not Resolved]
  - Hypersensitivity [Unknown]
  - Rash macular [Recovered/Resolved]
  - Alanine aminotransferase abnormal [Recovered/Resolved]
  - Blood lactate dehydrogenase increased [Recovering/Resolving]
  - Gamma-glutamyltransferase abnormal [Recovered/Resolved]
  - Blood alkaline phosphatase increased [Recovered/Resolved]

NARRATIVE: CASE EVENT DATE: 20231104
